FAERS Safety Report 9651651 (Version 2)
Quarter: 2013Q4

REPORT INFORMATION
  Report Type: Spontaneous
  Country: JP (occurrence: JP)
  Receive Date: 20131029
  Receipt Date: 20131029
  Transmission Date: 20140711
  Serious: Yes (Other)
  Sender: FDA-Public Use
  Company Number: JP-ASTELLAS-2012JP010306

PATIENT
  Age: 62 Year
  Sex: Female

DRUGS (12)
  1. PROGRAF [Suspect]
     Indication: RHEUMATOID ARTHRITIS
     Dosage: 1 MG, UID/QD
     Route: 048
     Dates: start: 20110705
  2. PROGRAF [Suspect]
     Dosage: 0.5 MG, UID/QD
     Route: 048
     Dates: start: 20110406, end: 20110704
  3. RHEUMATREX                         /00113801/ [Concomitant]
     Indication: RHEUMATOID ARTHRITIS
     Dosage: 4 MG, WEEKLY
     Route: 048
     Dates: start: 20050412, end: 20050808
  4. RHEUMATREX                         /00113801/ [Concomitant]
     Dosage: 6 MG, WEEKLY
     Route: 048
     Dates: start: 20050809, end: 20050905
  5. RHEUMATREX                         /00113801/ [Concomitant]
     Dosage: 8 MG, WEEKLY
     Route: 048
     Dates: start: 20050906, end: 20110605
  6. RHEUMATREX                         /00113801/ [Concomitant]
     Dosage: 10 MG, WEEKLY
     Route: 048
     Dates: start: 20110606
  7. RECALBON [Concomitant]
     Indication: OSTEOPOROSIS
     Dosage: UNK
     Route: 048
     Dates: start: 20121211
  8. PREDONINE                          /00016201/ [Concomitant]
     Indication: RHEUMATOID ARTHRITIS
     Dosage: 2 MG, UID/QD
     Route: 048
     Dates: start: 20050621
  9. DIOVAN [Concomitant]
     Indication: HYPERTENSION
     Dosage: 20 MG, UID/QD
     Route: 048
     Dates: start: 20121009
  10. NATRIX [Concomitant]
     Indication: HYPERTENSION
     Dosage: 0.25 MG, UID/QD
     Route: 048
     Dates: start: 20120807
  11. MELOXICAM [Concomitant]
     Indication: RHEUMATOID ARTHRITIS
     Dosage: 10 MG, UID/QD
     Route: 048
     Dates: start: 20050412
  12. LANSOPRAZOLE [Concomitant]
     Indication: GASTROOESOPHAGEAL REFLUX DISEASE
     Dosage: 15 MG, UID/QD
     Route: 048
     Dates: start: 20100830

REACTIONS (2)
  - Intentional drug misuse [Unknown]
  - Trigger finger [Recovering/Resolving]
